FAERS Safety Report 16152339 (Version 1)
Quarter: 2019Q2

REPORT INFORMATION
  Report Type: Spontaneous
  Country: US (occurrence: US)
  Receive Date: 20190403
  Receipt Date: 20190403
  Transmission Date: 20190711
  Serious: Yes (Other)
  Sender: FDA-Public Use
  Company Number: US-MYLANLABS-2019M1030405

PATIENT
  Sex: Male

DRUGS (5)
  1. PREDNISONE. [Suspect]
     Active Substance: PREDNISONE
     Indication: DRUG WITHDRAWAL SYNDROME
     Dosage: INITIAL DOSE WAS UNKNOWN, BUT THE PATIENT WAS CONTINUED ON LOW DOSE I.E. AT 5MG DAILY
     Route: 065
  2. IMATINIB. [Concomitant]
     Active Substance: IMATINIB MESYLATE
     Indication: DRUG WITHDRAWAL SYNDROME
     Dosage: LOW DOSE
     Route: 065
  3. DASATINIB. [Concomitant]
     Active Substance: DASATINIB
     Indication: DRUG WITHDRAWAL SYNDROME
     Route: 065
  4. TOFACITINIB [Concomitant]
     Active Substance: TOFACITINIB
     Indication: DRUG WITHDRAWAL SYNDROME
     Route: 065
  5. HYDROXYCHLOROQUINE [Concomitant]
     Active Substance: HYDROXYCHLOROQUINE
     Indication: DRUG WITHDRAWAL SYNDROME
     Route: 065

REACTIONS (2)
  - Chronic myeloid leukaemia recurrent [Recovering/Resolving]
  - Pleural effusion [Recovering/Resolving]
